FAERS Safety Report 15330657 (Version 2)
Quarter: 2018Q3

REPORT INFORMATION
  Report Type: Report from Study
  Country: US (occurrence: US)
  Receive Date: 20180829
  Receipt Date: 20180925
  Transmission Date: 20181010
  Serious: Yes (Hospitalization, Other)
  Sender: FDA-Public Use
  Company Number: US-THERATECHNOLOGIES, INC.-TH-2018-00343

PATIENT

DRUGS (7)
  1. OTHER THERAPEUTIC PRODUCTS [Concomitant]
     Active Substance: UNSPECIFIED INGREDIENT
  2. ATORVASTATIN [Concomitant]
     Active Substance: ATORVASTATIN
  3. OMEPRAZOLE. [Concomitant]
     Active Substance: OMEPRAZOLE
     Dosage: UNK
  4. EGRIFTA [Suspect]
     Active Substance: TESAMORELIN
     Indication: NON-ALCOHOLIC STEATOHEPATITIS
     Dosage: 2 MG MILLIGRAM(S), DAILY DOSE
     Route: 058
     Dates: start: 20170830
  5. CETRIZINE [Concomitant]
     Active Substance: CETIRIZINE HYDROCHLORIDE
  6. LITHIUM. [Concomitant]
     Active Substance: LITHIUM
  7. TRAZODONE [Concomitant]
     Active Substance: TRAZODONE HYDROCHLORIDE

REACTIONS (1)
  - Suicidal ideation [Recovered/Resolved]

NARRATIVE: CASE EVENT DATE: 20180731
